FAERS Safety Report 10576035 (Version 1)
Quarter: 2014Q4

REPORT INFORMATION
  Report Type: Spontaneous
  Country: US (occurrence: None)
  Receive Date: 20141107
  Receipt Date: 20141107
  Transmission Date: 20150529
  Serious: Yes (Other)
  Sender: FDA-Public Use
  Company Number: 2604343

PATIENT
  Age: 66 Year
  Sex: Female
  Weight: 97.97 kg

DRUGS (4)
  1. PACLITAXEL. [Suspect]
     Active Substance: PACLITAXEL
     Indication: UTERINE CANCER
     Dosage: NOT REPORTED, NOT REPORTED, UNKNOWN, INTRAVENOUS DRIP
     Route: 041
     Dates: start: 20141022, end: 20141022
  2. DECADRON [Concomitant]
     Active Substance: DEXAMETHASONE
  3. ZANTAC [Concomitant]
     Active Substance: RANITIDINE HYDROCHLORIDE
  4. ALOXI [Concomitant]
     Active Substance: PALONOSETRON HYDROCHLORIDE

REACTIONS (1)
  - Anaphylactoid reaction [None]

NARRATIVE: CASE EVENT DATE: 20141022
